FAERS Safety Report 8049256-7 (Version None)
Quarter: 2012Q1

REPORT INFORMATION
  Report Type: 
  Country: None (occurrence: None)
  Receive Date: 20120117
  Receipt Date: 20120113
  Transmission Date: 20120608
  Serious: Yes (Death)
  Sender: FDA-Public Use
  Company Number: JP-ROCHE-703634

PATIENT
  Sex: Male

DRUGS (11)
  1. ACTEMRA [Suspect]
     Route: 041
     Dates: start: 20090615, end: 20090907
  2. ACTEMRA [Suspect]
     Route: 041
     Dates: start: 20090420, end: 20090420
  3. METALCAPTASE [Concomitant]
     Indication: RHEUMATOID ARTHRITIS
     Dosage: DRUG: METALCAPTASE(D-PENICILLAMINE)
     Route: 048
     Dates: start: 20061208, end: 20100419
  4. LOXONIN [Concomitant]
     Indication: RHEUMATOID ARTHRITIS
     Dosage: FORM: PERORAL AGENT
     Route: 048
  5. ACTEMRA [Suspect]
     Route: 041
     Dates: start: 20090323, end: 20090323
  6. AZULFIDINE [Concomitant]
     Indication: RHEUMATOID ARTHRITIS
     Route: 048
     Dates: start: 20000501, end: 20100419
  7. PREDNISOLONE [Concomitant]
     Indication: PROPHYLAXIS
     Dosage: SINGLE USE AND UNCERTAIN DOSAGE
     Route: 048
  8. ACTEMRA [Suspect]
     Route: 041
     Dates: start: 20090223, end: 20090223
  9. ACTEMRA [Suspect]
     Route: 041
     Dates: start: 20091005, end: 20100419
  10. ACTEMRA [Suspect]
     Indication: RHEUMATOID ARTHRITIS
     Route: 041
     Dates: start: 20090126, end: 20090126
  11. ACTEMRA [Suspect]
     Route: 041
     Dates: start: 20090518, end: 20090518

REACTIONS (1)
  - SMALL CELL LUNG CANCER STAGE UNSPECIFIED [None]
